FAERS Safety Report 24227314 (Version 2)
Quarter: 2024Q3

REPORT INFORMATION
  Report Type: Spontaneous
  Country: US (occurrence: US)
  Receive Date: 20240820
  Receipt Date: 20240914
  Transmission Date: 20241016
  Serious: No
  Sender: AMGEN
  Company Number: US-AMGEN-USASP2024164662

PATIENT
  Age: 75 Year
  Sex: Female

DRUGS (4)
  1. XGEVA [Suspect]
     Active Substance: DENOSUMAB
     Indication: Breast cancer metastatic
     Dosage: UNK, Q4WK
     Route: 065
     Dates: end: 20240619
  2. XGEVA [Suspect]
     Active Substance: DENOSUMAB
     Indication: Metastases to lung
     Dosage: UNK, Q3WK
     Route: 065
     Dates: start: 2024
  3. XGEVA [Suspect]
     Active Substance: DENOSUMAB
     Indication: Metastases to bone
  4. ANASTROZOLE [Concomitant]
     Active Substance: ANASTROZOLE
     Indication: Hormone therapy

REACTIONS (1)
  - Off label use [Unknown]

NARRATIVE: CASE EVENT DATE: 20240101
